FAERS Safety Report 18570794 (Version 24)
Quarter: 2025Q1

REPORT INFORMATION
  Report Type: Report from Study
  Country: US (occurrence: US)
  Receive Date: 20201202
  Receipt Date: 20250114
  Transmission Date: 20250409
  Serious: Yes (Hospitalization, Other)
  Sender: TAKEDA
  Company Number: US-TAKEDA-2020TUS052478

PATIENT
  Age: 75 Year
  Sex: Female
  Weight: 85 kg

DRUGS (85)
  1. HUMAN IMMUNOGLOBULIN G [Suspect]
     Active Substance: HUMAN IMMUNOGLOBULIN G
     Indication: Immunodeficiency common variable
     Dosage: 22 GRAM, Q2WEEKS
     Dates: start: 20170907
  2. HUMAN IMMUNOGLOBULIN G [Suspect]
     Active Substance: HUMAN IMMUNOGLOBULIN G
     Dosage: UNK UNK, Q2WEEKS
     Dates: start: 20170914
  3. HUMAN IMMUNOGLOBULIN G [Suspect]
     Active Substance: HUMAN IMMUNOGLOBULIN G
     Dosage: 15 GRAM, Q2WEEKS
  4. HUMAN IMMUNOGLOBULIN G [Suspect]
     Active Substance: HUMAN IMMUNOGLOBULIN G
     Dosage: 22 GRAM, Q2WEEKS
     Dates: start: 20210130
  5. HUMAN IMMUNOGLOBULIN G [Suspect]
     Active Substance: HUMAN IMMUNOGLOBULIN G
     Dosage: 15 GRAM, Q2WEEKS
  6. OXYCODONE [Suspect]
     Active Substance: OXYCODONE
     Indication: Product used for unknown indication
  7. LOSARTAN POTASSIUM [Concomitant]
     Active Substance: LOSARTAN POTASSIUM
  8. HEPATONE [Concomitant]
  9. DICYCLOMINE HYDROCHLORIDE [Concomitant]
     Active Substance: DICYCLOMINE HYDROCHLORIDE
  10. VITAMIN D3 [Concomitant]
     Active Substance: CHOLECALCIFEROL
  11. VITAMIN C [Concomitant]
     Active Substance: ASCORBIC ACID
  12. COENZYME Q10 [Concomitant]
     Active Substance: DIETARY SUPPLEMENT\UBIDECARENONE
  13. BETAINE [Concomitant]
     Active Substance: BETAINE
  14. BERBERINE [Concomitant]
     Active Substance: BERBERINE
  15. ACETAMINOPHEN [Concomitant]
     Active Substance: ACETAMINOPHEN
  16. DIPHENHYDRAMINE [Concomitant]
     Active Substance: DIPHENHYDRAMINE
  17. LIDOCAINE [Concomitant]
     Active Substance: LIDOCAINE
  18. EPINEPHRINE [Concomitant]
     Active Substance: EPINEPHRINE
  19. CEPHALEXIN [Concomitant]
     Active Substance: CEPHALEXIN
  20. NIACINAMIDE [Concomitant]
     Active Substance: NIACINAMIDE
  21. CALCIUM PLUS D3 [Concomitant]
  22. DEGLYCYRRHIZINISED LIQUORICE [Concomitant]
  23. PARAFFIN [Concomitant]
     Active Substance: PARAFFIN
  24. FERRACTIV [Concomitant]
  25. METOPROLOL [Concomitant]
     Active Substance: METOPROLOL
  26. LIOTHYRONINE [Concomitant]
     Active Substance: LIOTHYRONINE
  27. UNSPECIFIED INGREDIENT [Concomitant]
     Active Substance: UNSPECIFIED INGREDIENT
  28. XARELTO [Concomitant]
     Active Substance: RIVAROXABAN
  29. RABEPRAZOLE [Concomitant]
     Active Substance: RABEPRAZOLE
  30. MECLIZINE HYDROCHLORIDE [Concomitant]
     Active Substance: MECLIZINE HYDROCHLORIDE
  31. FUROSEMIDE [Concomitant]
     Active Substance: FUROSEMIDE
  32. SYSTANE (HYPROMELLOSE 2910 (4000 MPA.S)) [Concomitant]
     Active Substance: HYPROMELLOSE 2910 (4000 MPA.S)
  33. TRIAMCINOLONE [Concomitant]
     Active Substance: TRIAMCINOLONE
  34. ACETONIDE DE FLUCLOROLONE [Concomitant]
  35. HYDROCHLOROTHIAZIDE [Concomitant]
     Active Substance: HYDROCHLOROTHIAZIDE
  36. KLOR-CON [Concomitant]
     Active Substance: POTASSIUM CHLORIDE
  37. DOCUSATE SODIUM [Concomitant]
     Active Substance: DOCUSATE SODIUM
  38. ZINC [Concomitant]
     Active Substance: ZINC
  39. MAGNESIUM [Concomitant]
     Active Substance: MAGNESIUM
  40. HOMOCYSTEINE FORMULA [Concomitant]
  41. MENTHOL\ZINC OXIDE [Concomitant]
     Active Substance: MENTHOL\ZINC OXIDE
  42. ALPHA LIPOIC ACID [Concomitant]
     Active Substance: .ALPHA.-LIPOIC ACID
  43. TIROSINT [Concomitant]
     Active Substance: LEVOTHYROXINE SODIUM
  44. ALDARA [Concomitant]
     Active Substance: IMIQUIMOD
  45. SYNERGY K [Concomitant]
  46. FOLIC ACID [Concomitant]
     Active Substance: FOLIC ACID
  47. IRON [Concomitant]
     Active Substance: IRON
  48. MINERAL OIL [Concomitant]
     Active Substance: MINERAL OIL
  49. HYDROCHLOROTHIAZIDE [Concomitant]
     Active Substance: HYDROCHLOROTHIAZIDE
  50. LIOTHYRONINE SODIUM [Concomitant]
     Active Substance: LIOTHYRONINE SODIUM
  51. RABEPRAZOLE SODIUM [Concomitant]
     Active Substance: RABEPRAZOLE SODIUM
  52. CETIRIZINE HYDROCHLORIDE [Concomitant]
     Active Substance: CETIRIZINE HYDROCHLORIDE
  53. AMLODIPINE BESYLATE [Concomitant]
     Active Substance: AMLODIPINE BESYLATE
  54. PROPAFENONE [Concomitant]
     Active Substance: PROPAFENONE
  55. POTASSIUM [Concomitant]
     Active Substance: POTASSIUM
  56. SYNERGY B [Concomitant]
  57. PREMARIN [Concomitant]
     Active Substance: ESTROGENS, CONJUGATED
  58. CETIRIZINE HCL [Concomitant]
     Active Substance: CETIRIZINE HYDROCHLORIDE
  59. PAPAYA ENZYME [Concomitant]
     Active Substance: STEARIC ACID
  60. LEVOTHYROXINE [Concomitant]
     Active Substance: LEVOTHYROXINE
  61. MODERNA COVID-19 VACCINE [Concomitant]
     Active Substance: ELASOMERAN
  62. OMEGA-3 FISH OIL +VITAMIN D [Concomitant]
  63. OMEGA 3 [Concomitant]
     Active Substance: CAPSAICIN
  64. PROPAFENONE HCL [Concomitant]
     Active Substance: PROPAFENONE HYDROCHLORIDE
  65. VITAMIN A [Concomitant]
     Active Substance: VITAMIN A
  66. AMLODIPINE [Concomitant]
     Active Substance: AMLODIPINE BESYLATE
  67. VITAMIN B12 [Concomitant]
     Active Substance: CYANOCOBALAMIN
  68. Diclomine [Concomitant]
  69. B COMPLEX PLUS VITAMIN C [Concomitant]
  70. MECLIZINE [Concomitant]
     Active Substance: MECLIZINE HYDROCHLORIDE
  71. LICORICE [Concomitant]
     Active Substance: LICORICE
  72. CEPHALEXIN [Concomitant]
     Active Substance: CEPHALEXIN
  73. PANCREAZE [Concomitant]
     Active Substance: PANCRELIPASE AMYLASE\PANCRELIPASE LIPASE\PANCRELIPASE PROTEASE
  74. LOSARTAN AND HYDROCHLOROTHIAZIDE [Concomitant]
     Active Substance: HYDROCHLOROTHIAZIDE\LOSARTAN POTASSIUM
  75. NEOMYCIN [Concomitant]
     Active Substance: NEOMYCIN
  76. DICYCLOMINE [Concomitant]
     Active Substance: DICYCLOMINE HYDROCHLORIDE
  77. Omega [Concomitant]
  78. Hair skin nails [Concomitant]
  79. NEOMYCIN SULFATE [Concomitant]
     Active Substance: NEOMYCIN SULFATE
  80. DIPHENHYDRAMINE HYDROCHLORIDE [Concomitant]
     Active Substance: DIPHENHYDRAMINE HYDROCHLORIDE
  81. HYDROCHLOROTHIAZIDE\LOSARTAN [Concomitant]
     Active Substance: HYDROCHLOROTHIAZIDE\LOSARTAN
  82. XIFAXAN [Concomitant]
     Active Substance: RIFAXIMIN
  83. ONDANSETRON HYDROCHLORIDE [Concomitant]
     Active Substance: ONDANSETRON HYDROCHLORIDE
  84. NITROGLYCERIN [Concomitant]
     Active Substance: NITROGLYCERIN
  85. LOSARTAN AND HYDROCHLOROTHIAZIDE [Concomitant]
     Active Substance: HYDROCHLOROTHIAZIDE\LOSARTAN POTASSIUM

REACTIONS (35)
  - Squamous cell carcinoma of skin [Unknown]
  - Muscle tension dysphonia [Unknown]
  - Neoplasm malignant [Unknown]
  - Basal cell carcinoma [Unknown]
  - Skin cancer [Unknown]
  - Sleep study [Unknown]
  - Atrial fibrillation [Unknown]
  - Uterine haemorrhage [Unknown]
  - Vaginal haemorrhage [Unknown]
  - Biopsy muscle abnormal [Unknown]
  - Heart rate decreased [Unknown]
  - Vulvovaginal dryness [Unknown]
  - Blood potassium decreased [Unknown]
  - Bladder disorder [Unknown]
  - Musculoskeletal pain [Unknown]
  - Ear pain [Unknown]
  - Vulvovaginal mycotic infection [Unknown]
  - Aphonia [Unknown]
  - Irritable bowel syndrome [Not Recovered/Not Resolved]
  - Pancreatic disorder [Not Recovered/Not Resolved]
  - Gastrooesophageal reflux disease [Not Recovered/Not Resolved]
  - Thyroid disorder [Unknown]
  - Osteoarthritis [Unknown]
  - Urinary tract infection [Unknown]
  - Fungal infection [Unknown]
  - Gastrointestinal microorganism overgrowth [Unknown]
  - Hepatic lesion [Unknown]
  - Eczema [Unknown]
  - Needle issue [Unknown]
  - Vertigo [Unknown]
  - Nasal congestion [Unknown]
  - Oropharyngeal pain [Unknown]
  - Pain in extremity [Unknown]
  - Cough [Unknown]
  - Pruritus [Unknown]

NARRATIVE: CASE EVENT DATE: 20220711
